FAERS Safety Report 5120252-2 (Version None)
Quarter: 2006Q4

REPORT INFORMATION
  Report Type: 
  Country: None (occurrence: None)
  Receive Date: 20061002
  Receipt Date: 20061002
  Transmission Date: 20070319
  Serious: Yes (Hospitalization)
  Sender: FDA-Public Use
  Company Number: None

PATIENT
  Sex: Male

DRUGS (19)
  1. IMATINIB MESYLATE [Suspect]
     Indication: KAPOSI'S SARCOMA
     Dosage: 400 MG DAILY PO
     Route: 048
     Dates: start: 20060417
  2. IMATINIB MESYLATE [Suspect]
     Indication: KAPOSI'S SARCOMA
     Dosage: 400 MG DAILY PO
     Route: 048
     Dates: start: 20060505
  3. BACTRIM DS [Concomitant]
  4. HYDROCODONE BITARTRATE + ACETAMINOPHEN [Concomitant]
  5. PROZAC [Concomitant]
  6. XANAX [Concomitant]
  7. TEMAZEPAM [Concomitant]
  8. ZYPREXA [Concomitant]
  9. DIFLUCAN [Concomitant]
  10. COMPAZINE [Concomitant]
  11. ACYCLOVIR [Concomitant]
  12. NEURONTIN [Concomitant]
  13. AZITHROMYCIN [Concomitant]
  14. TYLENOL [Concomitant]
  15. ETHAMBUTOL HYDROCHLORIDE [Concomitant]
  16. ALEVE [Concomitant]
  17. OXYCONTIN [Concomitant]
  18. HYDROCHLOROTHIAZDE TAB [Concomitant]
  19. SENOKOT [Concomitant]

REACTIONS (5)
  - DEHYDRATION [None]
  - MYCOBACTERIUM AVIUM COMPLEX INFECTION [None]
  - NAUSEA [None]
  - PAIN [None]
  - VOMITING [None]
